FAERS Safety Report 5661847-7 (Version None)
Quarter: 2008Q1

REPORT INFORMATION
  Report Type: 
  Country: None (occurrence: None)
  Receive Date: 20080312
  Receipt Date: 20080227
  Transmission Date: 20080703
  Serious: Yes (Other)
  Sender: FDA-Public Use
  Company Number: IE-SANOFI-SYNTHELABO-A01200801432

PATIENT
  Sex: Female

DRUGS (4)
  1. KYTRIL [Concomitant]
     Route: 042
  2. DEXAMETHASONE TAB [Concomitant]
     Indication: ANTIEMETIC SUPPORTIVE CARE
     Route: 042
  3. ELOXATIN [Suspect]
     Indication: COLON CANCER STAGE III
     Route: 042
     Dates: start: 20080101, end: 20080101
  4. XELODA [Concomitant]
     Indication: CHEMOTHERAPY
     Dosage: UNK
     Route: 048

REACTIONS (3)
  - DYSPNOEA [None]
  - LARYNGOSPASM [None]
  - MUSCULAR WEAKNESS [None]
